FAERS Safety Report 24750748 (Version 2)
Quarter: 2025Q4

REPORT INFORMATION
  Report Type: Report from Study
  Country: CA (occurrence: CA)
  Receive Date: 20241218
  Receipt Date: 20251210
  Transmission Date: 20260118
  Serious: Yes (Hospitalization, Other)
  Sender: SANDOZ
  Company Number: CA-SANDOZ-SDZ2024CA102566

PATIENT
  Sex: Female

DRUGS (1)
  1. ERELZI [Suspect]
     Active Substance: ETANERCEPT-SZZS
     Indication: Rheumatoid arthritis
     Dosage: 50 MG, QW
     Route: 058
     Dates: start: 20220930

REACTIONS (7)
  - Pharyngeal haemorrhage [Unknown]
  - Blood disorder [Unknown]
  - Drug interaction [Unknown]
  - Joint deformity [Unknown]
  - Peripheral swelling [Unknown]
  - Pain [Unknown]
  - Urinary tract infection [Unknown]
